FAERS Safety Report 7488739-5 (Version None)
Quarter: 2011Q2

REPORT INFORMATION
  Report Type: 
  Country: None (occurrence: None)
  Receive Date: 20110518
  Receipt Date: 20110517
  Transmission Date: 20111010
  Serious: Yes (Hospitalization)
  Sender: FDA-Public Use
  Company Number: FR-EISAI INC-E2020-09167-SPO-FR

PATIENT
  Sex: Male

DRUGS (7)
  1. KERLONE [Concomitant]
     Dosage: UNKNOWN
     Route: 048
  2. SIMVASTATIN [Concomitant]
     Dosage: UNKNOWN
     Route: 048
  3. ARICEPT [Suspect]
     Route: 048
     Dates: start: 20101001, end: 20101114
  4. ATACAND [Concomitant]
     Dosage: UNKNOWN
     Route: 048
  5. TRIVASTAL [Concomitant]
     Dosage: UNKNOWN
     Route: 048
  6. ARICEPT [Suspect]
     Route: 048
     Dates: start: 20101115, end: 20101118
  7. ARICEPT [Suspect]
     Route: 048
     Dates: start: 20110202, end: 20110202

REACTIONS (3)
  - SYNCOPE [None]
  - LOSS OF CONSCIOUSNESS [None]
  - ATRIOVENTRICULAR BLOCK [None]
